FAERS Safety Report 4703576-X (Version None)
Quarter: 2005Q2

REPORT INFORMATION
  Report Type: 
  Country: None (occurrence: None)
  Receive Date: 20050208
  Receipt Date: 20050208
  Transmission Date: 20051028
  Serious: No
  Sender: FDA-Public Use
  Company Number: None

PATIENT
  Sex: Female
  Weight: 76.6579 kg

DRUGS (2)
  1. PERCOCET (GENERIC) 7.5/325MG [Suspect]
     Indication: BACK PAIN
     Dosage: PO 1-2 Q 4 HOURS PRN
     Route: 048
  2. PERCOCET (GENERIC) 7.5/325MG [Suspect]
     Indication: HEADACHE
     Dosage: PO 1-2 Q 4 HOURS PRN
     Route: 048

REACTIONS (2)
  - INADEQUATE ANALGESIA [None]
  - THERAPEUTIC RESPONSE UNEXPECTED WITH DRUG SUBSTITUTION [None]
